FAERS Safety Report 7944609-7 (Version None)
Quarter: 2011Q4

REPORT INFORMATION
  Report Type: 
  Country: None (occurrence: None)
  Receive Date: 20111114
  Receipt Date: 20110822
  Transmission Date: 20120403
  Serious: No
  Sender: FDA-Public Use
  Company Number: 1000023075

PATIENT
  Age: 52 Year
  Sex: Female

DRUGS (5)
  1. NEURONTIN [Concomitant]
  2. FLEXERIL (CYCLOBENZAPRINE) (CYCLOBENZAPRINE) [Concomitant]
  3. SAVELLA [Suspect]
     Indication: FIBROMYALGIA
     Dosage: SEE IMAGE
     Route: 048
     Dates: start: 20110401, end: 20110401
  4. SAVELLA [Suspect]
     Indication: FIBROMYALGIA
     Dosage: SEE IMAGE
     Route: 048
     Dates: start: 20110401, end: 20110801
  5. ZOMIG (ZOLMITRIPTAN) (ZOLMITRIPTAN) [Concomitant]

REACTIONS (2)
  - HOT FLUSH [None]
  - INSOMNIA [None]
